FAERS Safety Report 7013912-X (Version None)
Quarter: 2010Q3

REPORT INFORMATION
  Report Type: 
  Country: None (occurrence: None)
  Receive Date: 20100924
  Receipt Date: 20100917
  Transmission Date: 20110219
  Serious: Yes (Hospitalization)
  Sender: FDA-Public Use
  Company Number: IT-MERCK-1009ITA00036

PATIENT
  Age: 78 Year
  Sex: Female

DRUGS (9)
  1. MODURETIC 5-50 [Suspect]
     Indication: HYPERTENSION
     Route: 048
     Dates: start: 20100617, end: 20100910
  2. LORMETAZEPAM [Suspect]
     Route: 048
     Dates: start: 20100802, end: 20100910
  3. ASPIRIN [Suspect]
     Route: 048
     Dates: start: 20100617, end: 20100910
  4. ROTIGOTINE [Suspect]
     Route: 065
     Dates: start: 20100802, end: 20100910
  5. BENSERAZIDE HYDROCHLORIDE AND LEVODOPA [Concomitant]
     Indication: PARKINSON'S DISEASE
     Route: 065
  6. ROPINIROLE HYDROCHLORIDE [Concomitant]
     Route: 048
  7. CARBIDOPA AND LEVODOPA [Concomitant]
     Route: 048
  8. AMANTADINE HYDROCHLORIDE [Concomitant]
     Route: 048
  9. FUROSEMIDE [Concomitant]
     Route: 065

REACTIONS (6)
  - CONFUSIONAL STATE [None]
  - FALL [None]
  - GAIT DISTURBANCE [None]
  - HYPERKALAEMIA [None]
  - SPEECH DISORDER [None]
  - SUBARACHNOID HAEMORRHAGE [None]
